FAERS Safety Report 7620462-6 (Version None)
Quarter: 2011Q3

REPORT INFORMATION
  Report Type: 
  Country: None (occurrence: None)
  Receive Date: 20110719
  Receipt Date: 20110713
  Transmission Date: 20111222
  Serious: Yes (Other)
  Sender: FDA-Public Use
  Company Number: US-PFIZER INC-2011159264

PATIENT
  Sex: Male
  Weight: 83.9 kg

DRUGS (16)
  1. ANTIVERT [Suspect]
     Indication: DIZZINESS
     Dosage: UNK
     Route: 048
  2. SPIRIVA [Concomitant]
     Dosage: UNK
  3. MULTI-VITAMINS [Concomitant]
     Dosage: UNK
  4. OSTEO BI-FLEX [Concomitant]
     Dosage: UNK
  5. DIOVAN HCT [Concomitant]
     Dosage: 160/25 MG,UNK
  6. GEMFIBROZIL [Concomitant]
     Dosage: 600 MG, UNK
  7. ACETYLSALICYLIC ACID [Concomitant]
     Dosage: 325 MG, UNK
  8. CO-Q-10 [Concomitant]
     Dosage: UNK
  9. OXYGEN [Concomitant]
     Dosage: 3 LITERS, UNK
  10. ANTIVERT [Suspect]
     Indication: HEAD INJURY
  11. CELEBREX [Concomitant]
     Dosage: 200 MG, UNK
  12. MECLOZINE HYDROCHLORIDE [Concomitant]
     Indication: DIZZINESS
     Dosage: 25 MG, 3X/DAY
     Route: 048
  13. MECLOZINE HYDROCHLORIDE [Concomitant]
     Indication: HEAD INJURY
  14. ULTRAM [Concomitant]
     Dosage: 60 MG, UNK
  15. PRILOSEC [Concomitant]
     Dosage: 20 MG, UNK
  16. LIVALO [Concomitant]
     Dosage: UNK

REACTIONS (2)
  - PROSTATE CANCER [None]
  - RENAL CANCER [None]
